FAERS Safety Report 20650938 (Version 3)
Quarter: 2022Q2

REPORT INFORMATION
  Report Type: Spontaneous
  Country: US (occurrence: US)
  Receive Date: 20220329
  Receipt Date: 20220603
  Transmission Date: 20220720
  Serious: Yes (Other)
  Sender: FDA-Public Use
  Company Number: US-ABBVIE-22K-163-4336197-00

PATIENT
  Sex: Male
  Weight: 72.640 kg

DRUGS (6)
  1. LUPRON [Suspect]
     Active Substance: LEUPROLIDE ACETATE
     Indication: Prostate cancer stage IV
     Route: 030
     Dates: start: 2020
  2. ASPIRIN [Concomitant]
     Active Substance: ASPIRIN
     Indication: Cardiac disorder
  3. TYLENOL [Concomitant]
     Active Substance: ACETAMINOPHEN
     Indication: Pain
  4. PREDNISONE [Concomitant]
     Active Substance: PREDNISONE
     Indication: Pain
  5. COVID-19 VACCINE [Concomitant]
     Indication: COVID-19 immunisation
  6. HUMIRA [Concomitant]
     Active Substance: ADALIMUMAB
     Indication: Colitis ulcerative
     Dates: start: 2020

REACTIONS (11)
  - Hepatic cirrhosis [Recovering/Resolving]
  - Neuropathy peripheral [Not Recovered/Not Resolved]
  - Metastases to bone [Recovering/Resolving]
  - Prostate cancer stage IV [Recovering/Resolving]
  - Swelling [Recovering/Resolving]
  - Balance disorder [Recovering/Resolving]
  - Arthropathy [Recovering/Resolving]
  - Muscle spasms [Recovering/Resolving]
  - Arthritis [Not Recovered/Not Resolved]
  - Hyperhidrosis [Recovering/Resolving]
  - Hot flush [Not Recovered/Not Resolved]

NARRATIVE: CASE EVENT DATE: 20200101
